FAERS Safety Report 6467547-8 (Version None)
Quarter: 2009Q4

REPORT INFORMATION
  Report Type: 
  Country: None (occurrence: None)
  Receive Date: 20091202
  Receipt Date: 20091105
  Transmission Date: 20100525
  Serious: No
  Sender: FDA-Public Use
  Company Number: US-BAYER-200916582BCC

PATIENT
  Age: 24 Year
  Sex: Female
  Weight: 76 kg

DRUGS (2)
  1. ALEVE [Suspect]
     Indication: TOOTHACHE
     Dosage: UNIT DOSE: 220 MG
     Route: 048
     Dates: start: 20091104
  2. LEVOTHYROXINE SODIUM [Concomitant]
     Dosage: TOTAL DAILY DOSE: 200 ?G  UNIT DOSE: 200 ?G
     Route: 065

REACTIONS (2)
  - ABDOMINAL PAIN [None]
  - NAUSEA [None]
